FAERS Safety Report 5375435-3 (Version None)
Quarter: 2007Q2

REPORT INFORMATION
  Report Type: 
  Country: None (occurrence: None)
  Receive Date: 20070629
  Receipt Date: 20070625
  Transmission Date: 20071010
  Serious: Yes (Death, Hospitalization)
  Sender: FDA-Public Use
  Company Number: DE-BOEHRINGER INGELHEIM PHARMACEUTICALS, INC.-2007-DE-03774DE

PATIENT
  Sex: Female
  Weight: 90 kg

DRUGS (1)
  1. MICARDIS [Suspect]

REACTIONS (2)
  - CHOLECYSTECTOMY [None]
  - PULMONARY EMBOLISM [None]
